FAERS Safety Report 4743547-0 (Version None)
Quarter: 2005Q3

REPORT INFORMATION
  Report Type: 
  Country: None (occurrence: None)
  Receive Date: 20050812
  Receipt Date: 20050803
  Transmission Date: 20060218
  Serious: Yes (Hospitalization)
  Sender: FDA-Public Use
  Company Number: US-JNJFOC-20050600944

PATIENT
  Sex: Female
  Weight: 84.82 kg

DRUGS (11)
  1. REMICADE [Suspect]
     Dosage: 5 VIALS
     Route: 042
  2. REMICADE [Suspect]
     Indication: RHEUMATOID ARTHRITIS
     Dosage: 5 VIALS
     Route: 042
  3. METHOTREXATE [Concomitant]
     Indication: RHEUMATOID ARTHRITIS
  4. PLAQUENIL [Concomitant]
     Indication: RHEUMATOID ARTHRITIS
  5. FOLIC ACID [Concomitant]
  6. COZAAR [Concomitant]
     Indication: BLOOD PRESSURE
  7. ALTACE [Concomitant]
     Indication: BLOOD PRESSURE
  8. METFORMIN [Concomitant]
  9. ESTRADIOL [Concomitant]
     Indication: DRUG USE FOR UNKNOWN INDICATION
  10. PROMETRIUM [Concomitant]
     Indication: DRUG USE FOR UNKNOWN INDICATION
  11. REGLAN [Concomitant]
     Indication: GASTROINTESTINAL DISORDER
     Dosage: 5 MG - 20 MG DAILY

REACTIONS (3)
  - BLOOD CHOLESTEROL INCREASED [None]
  - HOSPITALISATION [None]
  - WEIGHT INCREASED [None]
